FAERS Safety Report 7078452-0 (Version None)
Quarter: 2010Q4

REPORT INFORMATION
  Report Type: 
  Country: None (occurrence: None)
  Receive Date: 20101101
  Receipt Date: 20101101
  Transmission Date: 20110411
  Serious: Yes (Life-Threatening, Other)
  Sender: FDA-Public Use
  Company Number: None

PATIENT
  Age: 37 Year
  Sex: Female
  Weight: 120.2032 kg

DRUGS (3)
  1. OXYCONTIN [Suspect]
     Indication: PAIN
     Dosage: 40MG 3 TIMES DAY PO
     Route: 048
  2. OXYCONTIN [Suspect]
     Indication: SPINAL FUSION SURGERY
     Dosage: 40MG 3 TIMES DAY PO
     Route: 048
  3. OXYCONTIN [Suspect]
     Indication: SURGICAL FAILURE
     Dosage: 40MG 3 TIMES DAY PO
     Route: 048

REACTIONS (12)
  - ABDOMINAL PAIN UPPER [None]
  - ACTIVITIES OF DAILY LIVING IMPAIRED [None]
  - ASTHENIA [None]
  - CONSTIPATION [None]
  - DISCOMFORT [None]
  - DRUG INEFFECTIVE [None]
  - LOSS OF CONSCIOUSNESS [None]
  - MEDICATION RESIDUE [None]
  - NAUSEA [None]
  - PRODUCT FORMULATION ISSUE [None]
  - PSORIASIS [None]
  - QUALITY OF LIFE DECREASED [None]
